FAERS Safety Report 24370946 (Version 1)
Quarter: 2024Q3

REPORT INFORMATION
  Report Type: Spontaneous
  Country: US (occurrence: US)
  Receive Date: 20240927
  Receipt Date: 20240927
  Transmission Date: 20241017
  Serious: No
  Sender: RECKITT BENCKISER
  Company Number: US-Indivior Limited-INDV-145835-2024

PATIENT

DRUGS (2)
  1. PERSERIS [Suspect]
     Active Substance: RISPERIDONE
     Indication: Product used for unknown indication
     Dosage: UNK, QMO
     Route: 065
  2. PERSERIS [Suspect]
     Active Substance: RISPERIDONE
     Dosage: UNK, QMO
     Route: 065

REACTIONS (1)
  - Injection site pain [Unknown]
